FAERS Safety Report 23788513 (Version 1)
Quarter: 2024Q2

REPORT INFORMATION
  Report Type: Spontaneous
  Country: US (occurrence: US)
  Receive Date: 20240426
  Receipt Date: 20240426
  Transmission Date: 20240716
  Serious: No
  Sender: FDA-Public Use
  Company Number: US-PTx-2023000047

PATIENT

DRUGS (1)
  1. LEUKINE [Suspect]
     Active Substance: SARGRAMOSTIM
     Indication: Alveolar proteinosis
     Dosage: UNK
     Route: 055

REACTIONS (4)
  - Cough [Unknown]
  - Rash [Unknown]
  - Vision blurred [Unknown]
  - Pain [Unknown]
